FAERS Safety Report 4386984-9 (Version None)
Quarter: 2004Q2

REPORT INFORMATION
  Report Type: 
  Country: None (occurrence: None)
  Receive Date: 20040625
  Receipt Date: 20040615
  Transmission Date: 20050107
  Serious: Yes (Death)
  Sender: FDA-Public Use
  Company Number: 2004215907JP

PATIENT
  Age: 71 Year
  Sex: Male

DRUGS (11)
  1. CAMPTOSAR [Suspect]
     Indication: RECTAL CANCER
     Dosage: 250 MG, CYCLIC, IV DRIP
     Route: 041
     Dates: start: 20031112, end: 20040218
  2. FURTULON (DOXIFLURIDINE) [Suspect]
     Indication: RECTAL CANCER
     Dosage: 200 MG, QID, ORAL
     Route: 048
     Dates: start: 20031114, end: 20040229
  3. ASPIRIN [Concomitant]
  4. LANIRAPID (METILDIGOXIN) [Concomitant]
  5. VERAPAMIL HYDROCHLORIDE [Concomitant]
  6. MAGNESIUM OXIDE [Concomitant]
  7. CEFCAPENE PIVOXIL HYDROCHLORIDE) [Concomitant]
  8. LOPEMIN [Concomitant]
  9. KYTRIL [Concomitant]
  10. PARIET (RABEPRAZOLE SODIUM) [Concomitant]
  11. NAUZELIN (DOMPERIDONE) [Concomitant]

REACTIONS (5)
  - ARRHYTHMIA [None]
  - CARDIO-RESPIRATORY ARREST [None]
  - EPIGASTRIC DISCOMFORT [None]
  - MYOCARDIAL ISCHAEMIA [None]
  - VOMITING [None]
